FAERS Safety Report 24526208 (Version 2)
Quarter: 2024Q4

REPORT INFORMATION
  Report Type: Spontaneous
  Country: US (occurrence: US)
  Receive Date: 20241021
  Receipt Date: 20241209
  Transmission Date: 20250115
  Serious: No
  Sender: TAKEDA
  Company Number: US-TAKEDA-2024TUS102237

PATIENT

DRUGS (1)
  1. GAMMAGARD LIQUID [Suspect]
     Active Substance: HUMAN IMMUNOGLOBULIN G
     Indication: Chronic active Epstein-Barr virus infection
     Dosage: UNK

REACTIONS (9)
  - Insurance issue [Unknown]
  - Illness [Unknown]
  - Fear of death [Unknown]
  - General physical health deterioration [Unknown]
  - Epstein-Barr virus antibody positive [Recovering/Resolving]
  - Polymerase chain reaction positive [Recovering/Resolving]
  - Product use in unapproved indication [Unknown]
  - Speech disorder [Unknown]
  - Dysphemia [Unknown]
